FAERS Safety Report 24615127 (Version 1)
Quarter: 2024Q4

REPORT INFORMATION
  Report Type: Spontaneous
  Country: JP (occurrence: JP)
  Receive Date: 20241113
  Receipt Date: 20241113
  Transmission Date: 20250115
  Serious: Yes (Life-Threatening, Other)
  Sender: PFIZER
  Company Number: JP-PFIZER INC-PV202400145660

PATIENT
  Age: 7 Decade
  Sex: Female

DRUGS (2)
  1. METHYLPREDNISOLONE SODIUM SUCCINATE [Suspect]
     Active Substance: METHYLPREDNISOLONE SODIUM SUCCINATE
     Indication: Bickerstaff^s encephalitis
     Dosage: 1000 MG, DAILY DAY 21
  2. PREDNISOLONE [Suspect]
     Active Substance: PREDNISOLONE
     Indication: Bickerstaff^s encephalitis
     Dosage: 60 MG, DAILY

REACTIONS (2)
  - Drug ineffective for unapproved indication [Unknown]
  - Off label use [Unknown]
